FAERS Safety Report 9557017 (Version 1)
Quarter: 2013Q3

REPORT INFORMATION
  Report Type: Not Available
  Country: US (occurrence: US)
  Receive Date: 20130926
  Receipt Date: 20130926
  Transmission Date: 20140515
  Serious: No
  Sender: FDA-Public Use
  Company Number: US-TARO-2012P1056258

PATIENT
  Age: 7 Year
  Sex: Female
  Weight: 18.6 kg

DRUGS (2)
  1. MALATHION LOTION USP 0.5% [Suspect]
     Indication: LICE INFESTATION
     Route: 061
     Dates: start: 20120825, end: 20120825
  2. ALBUTEROL [Concomitant]
     Indication: ASTHMA

REACTIONS (1)
  - Thermal burn [Recovering/Resolving]
